FAERS Safety Report 8154800-5 (Version None)
Quarter: 2012Q1

REPORT INFORMATION
  Report Type: 
  Country: None (occurrence: None)
  Receive Date: 20120221
  Receipt Date: 20120209
  Transmission Date: 20120608
  Serious: Yes (Other)
  Sender: FDA-Public Use
  Company Number: PHHY2009JP42158

PATIENT
  Sex: Male

DRUGS (6)
  1. SPRYCEL [Concomitant]
     Dosage: 100 MG, UNK
     Route: 048
     Dates: start: 20090409, end: 20090513
  2. HYDREA [Concomitant]
     Indication: CHRONIC MYELOID LEUKAEMIA
     Dosage: 2000 MG, UNK
     Route: 048
     Dates: start: 20080610, end: 20080701
  3. TASIGNA [Suspect]
     Dosage: 800 MG, DAILY
     Route: 048
     Dates: start: 20090829, end: 20090911
  4. TASIGNA [Suspect]
     Dosage: 400 MG, DAILY
     Route: 048
     Dates: start: 20090724, end: 20090828
  5. SPRYCEL [Concomitant]
     Indication: CHRONIC MYELOID LEUKAEMIA
     Dosage: 140 MG, UNK
     Route: 048
     Dates: start: 20090409, end: 20090513
  6. TASIGNA [Suspect]
     Indication: CHRONIC MYELOID LEUKAEMIA
     Dosage: 800 MG, DAILY
     Route: 048
     Dates: start: 20090515, end: 20090711

REACTIONS (3)
  - HAEMOGLOBIN DECREASED [None]
  - CHRONIC MYELOID LEUKAEMIA [None]
  - NEOPLASM MALIGNANT [None]
